FAERS Safety Report 26077341 (Version 1)
Quarter: 2025Q4

REPORT INFORMATION
  Report Type: Spontaneous
  Country: US (occurrence: US)
  Receive Date: 20251121
  Receipt Date: 20251121
  Transmission Date: 20260118
  Serious: No
  Sender: NOVO NORDISK
  Company Number: US-NOVOPROD-1527592

PATIENT
  Sex: Female

DRUGS (1)
  1. INSULIN DEGLUDEC [Suspect]
     Active Substance: INSULIN DEGLUDEC
     Indication: Product used for unknown indication
     Dosage: 40 IU, BID
     Dates: start: 2023

REACTIONS (3)
  - Nausea [Recovered/Resolved]
  - Palpitations [Unknown]
  - Glycosylated haemoglobin increased [Not Recovered/Not Resolved]
